FAERS Safety Report 13800079 (Version 1)
Quarter: 2017Q3

REPORT INFORMATION
  Report Type: Spontaneous
  Country: US (occurrence: US)
  Receive Date: 20170727
  Receipt Date: 20170727
  Transmission Date: 20171127
  Serious: No
  Sender: FDA-Public Use
  Company Number: US-JNJFOC-20170614010

PATIENT
  Age: 60 Year
  Sex: Female
  Weight: 68.04 kg

DRUGS (8)
  1. TERBINAFINE. [Concomitant]
     Active Substance: TERBINAFINE
     Indication: ANTIBIOTIC THERAPY
     Dosage: 6-12 MONTHS, ANTIBIOTIC FOR NAILS-STOPPED 2DAYS AGO
     Route: 065
     Dates: end: 201706
  2. MELATONIN [Concomitant]
     Active Substance: MELATONIN
     Indication: SLEEP DISORDER THERAPY
     Dosage: AS NEEDED AT NIGHT
     Route: 065
  3. WOMENS ROGAINE UNSCENTED [Suspect]
     Active Substance: MINOXIDIL
     Route: 061
  4. WOMENS ROGAINE UNSCENTED [Suspect]
     Active Substance: MINOXIDIL
     Indication: ALOPECIA
     Dosage: 1/2 CAP SOMETIMES A LITTLE MORE
     Route: 061
  5. FLAXSEED [Concomitant]
     Active Substance: FLAX SEED
     Indication: NEOPLASM PROPHYLAXIS
     Route: 065
  6. LEVOTHYROXINE. [Concomitant]
     Active Substance: LEVOTHYROXINE
     Indication: PRODUCT USED FOR UNKNOWN INDICATION
     Route: 065
  7. ARIPIPRAZOLE. [Concomitant]
     Active Substance: ARIPIPRAZOLE
     Indication: ANXIETY
     Route: 065
  8. EXEMESTANE. [Concomitant]
     Active Substance: EXEMESTANE
     Indication: PRECANCEROUS CELLS PRESENT
     Route: 065

REACTIONS (2)
  - Hair texture abnormal [Not Recovered/Not Resolved]
  - Overdose [Unknown]
